FAERS Safety Report 4407760-4 (Version None)
Quarter: 2004Q3

REPORT INFORMATION
  Report Type: 
  Country: None (occurrence: None)
  Receive Date: 20040721
  Receipt Date: 20040715
  Transmission Date: 20050211
  Serious: Yes (Other)
  Sender: FDA-Public Use
  Company Number: 2004-07-0395

PATIENT
  Age: 39 Year
  Sex: Male

DRUGS (3)
  1. PEG-INTRON [Suspect]
     Indication: HEPATITIS CHRONIC ACTIVE
     Dosage: SUBCUTANEOUS
     Route: 058
     Dates: start: 20040412
  2. REBETOL [Suspect]
     Indication: HEPATITIS CHRONIC ACTIVE
     Dosage: 1200 MG QD ORAL
     Route: 048
     Dates: start: 20040412
  3. PROZAC [Concomitant]

REACTIONS (1)
  - DEEP VEIN THROMBOSIS [None]
